FAERS Safety Report 25437795 (Version 1)
Quarter: 2025Q2

REPORT INFORMATION
  Report Type: Spontaneous
  Country: US (occurrence: US)
  Receive Date: 20250616
  Receipt Date: 20250616
  Transmission Date: 20250717
  Serious: Yes (Other)
  Sender: BAXTER
  Company Number: US-MLMSERVICE-20250602-PI530433-00140-1

PATIENT
  Age: 22 Year
  Sex: Male
  Weight: 94.785 kg

DRUGS (4)
  1. IFOSFAMIDE [Suspect]
     Active Substance: IFOSFAMIDE
     Indication: Malignant mediastinal neoplasm
     Route: 065
  2. ETOPOSIDE [Suspect]
     Active Substance: ETOPOSIDE
     Indication: Malignant mediastinal neoplasm
     Route: 065
  3. CISPLATIN [Suspect]
     Active Substance: CISPLATIN
     Indication: Malignant mediastinal neoplasm
     Route: 065
  4. PEGFILGRASTIM [Concomitant]
     Active Substance: PEGFILGRASTIM
     Indication: Infection prophylaxis

REACTIONS (5)
  - Syncope [Unknown]
  - Pancytopenia [Unknown]
  - Febrile neutropenia [Unknown]
  - Dehydration [Unknown]
  - Stomatitis [Unknown]
